FAERS Safety Report 11529712 (Version 1)
Quarter: 2015Q3

REPORT INFORMATION
  Report Type: Other
  Country: GB (occurrence: GB)
  Receive Date: 20150921
  Receipt Date: 20150921
  Transmission Date: 20151125
  Serious: Yes (Other)
  Sender: FDA-Public Use
  Company Number: GB-MYLANLABS-2015M1030425

PATIENT

DRUGS (1)
  1. LETROZOLE. [Suspect]
     Active Substance: LETROZOLE
     Dosage: UNK

REACTIONS (3)
  - Nail disorder [Recovered/Resolved]
  - Nail dystrophy [Recovered/Resolved]
  - Nail growth abnormal [Recovered/Resolved]

NARRATIVE: CASE EVENT DATE: 20150108
